FAERS Safety Report 10084253 (Version 2)
Quarter: 2014Q2

REPORT INFORMATION
  Report Type: Spontaneous
  Country: JP (occurrence: JP)
  Receive Date: 20140417
  Receipt Date: 20140501
  Transmission Date: 20141212
  Serious: No
  Sender: FDA-Public Use
  Company Number: JP-MERCK-1404JPN009782

PATIENT
  Age: 74 Year
  Sex: Female

DRUGS (5)
  1. BONALON [Suspect]
     Indication: OSTEOPOROSIS
     Dosage: 35 MG, QW (DAILY DOSE REPORTED AS 35MG)
     Route: 048
     Dates: start: 200801, end: 201403
  2. BONALON [Suspect]
     Indication: OSTEOPOROSIS
     Dosage: 5 MG, QD
     Route: 048
     Dates: start: 200301, end: 200801
  3. ONEALFA [Concomitant]
     Indication: OSTEOPOROSIS
     Dosage: 0.5 MICROGRAM, QD
     Route: 048
     Dates: start: 201007
  4. ASPARA CA [Concomitant]
     Indication: OSTEOPOROSIS
     Dosage: 400 MG, QD
     Route: 048
     Dates: start: 200301
  5. SUMILU [Concomitant]
     Dosage: 70 MG/DAY
     Route: 062
     Dates: start: 200301

REACTIONS (1)
  - Femur fracture [Not Recovered/Not Resolved]
